FAERS Safety Report 19707274 (Version 1)
Quarter: 2021Q3

REPORT INFORMATION
  Report Type: Spontaneous
  Country: US (occurrence: US)
  Receive Date: 20210817
  Receipt Date: 20210817
  Transmission Date: 20211014
  Serious: No
  Sender: FDA-Public Use
  Company Number: None

PATIENT
  Age: 23 Year
  Sex: Female
  Weight: 149.69 kg

DRUGS (4)
  1. CYMBALTA [Concomitant]
     Active Substance: DULOXETINE HYDROCHLORIDE
  2. ALBUTEROL INHALER [Concomitant]
     Active Substance: ALBUTEROL
  3. GABAPENTIN. [Concomitant]
     Active Substance: GABAPENTIN
  4. NEXPLANON [Suspect]
     Active Substance: ETONOGESTREL
     Dates: start: 20181130

REACTIONS (2)
  - Papilloedema [None]
  - Complication associated with device [None]

NARRATIVE: CASE EVENT DATE: 20210804
